FAERS Safety Report 10479990 (Version 1)
Quarter: 2014Q3

REPORT INFORMATION
  Report Type: Spontaneous
  Country: US (occurrence: US)
  Receive Date: 20140929
  Receipt Date: 20140929
  Transmission Date: 20150326
  Serious: No
  Sender: FDA-Public Use
  Company Number: US-AMGEN INC.-USASP2014072882

PATIENT
  Age: 66 Year
  Sex: Male

DRUGS (1)
  1. ENBREL [Suspect]
     Active Substance: ETANERCEPT
     Indication: PSORIATIC ARTHROPATHY
     Dosage: 50 MG, 2 TIMES/WK
     Route: 065
     Dates: start: 20140521

REACTIONS (7)
  - Vomiting [Recovered/Resolved]
  - Dehydration [Recovered/Resolved]
  - Incorrect dose administered [Recovered/Resolved]
  - Feeling cold [Recovered/Resolved]
  - Abdominal pain upper [Recovered/Resolved]
  - Drug withdrawal syndrome [Recovered/Resolved]
  - Burning sensation [Recovered/Resolved]

NARRATIVE: CASE EVENT DATE: 201408
